FAERS Safety Report 5363869-2 (Version None)
Quarter: 2007Q2

REPORT INFORMATION
  Report Type: 
  Country: None (occurrence: None)
  Receive Date: 20070530
  Receipt Date: 20070105
  Transmission Date: 20071010
  Serious: No
  Sender: FDA-Public Use
  Company Number: 2007PV027989

PATIENT
  Age: 68 Year
  Sex: Female
  Weight: 102.0593 kg

DRUGS (5)
  1. BYETTA [Suspect]
     Indication: DIABETES MELLITUS NON-INSULIN-DEPENDENT
     Dosage: 10 MCG;BID;SC
     Route: 058
     Dates: start: 20060101
  2. BLYBURIDE [Concomitant]
  3. METFORMIN HCL [Concomitant]
  4. BLOOD PRESSURE MEDICATION [Concomitant]
  5. MEDICATION [Concomitant]

REACTIONS (3)
  - BLOOD GLUCOSE FLUCTUATION [None]
  - BLOOD GLUCOSE INCREASED [None]
  - FEELING ABNORMAL [None]
